FAERS Safety Report 5182702-5 (Version None)
Quarter: 2006Q4

REPORT INFORMATION
  Report Type: 
  Country: None (occurrence: None)
  Receive Date: 20061220
  Receipt Date: 20050901
  Transmission Date: 20070319
  Serious: No
  Sender: FDA-Public Use
  Company Number: US-GLAXOSMITHKLINE-A0573252A

PATIENT
  Age: 43 Year
  Sex: Female

DRUGS (5)
  1. NICODERM CQ [Suspect]
     Dates: start: 20050530, end: 20050612
  2. NICODERM CQ [Suspect]
     Dates: start: 20050612
  3. KLONOPIN [Concomitant]
  4. LEVAQUIN [Concomitant]
  5. CELEBREX [Concomitant]

REACTIONS (11)
  - AGITATION [None]
  - ANTISOCIAL BEHAVIOUR [None]
  - ANXIETY [None]
  - APPLICATION SITE ERYTHEMA [None]
  - APPLICATION SITE PRURITUS [None]
  - DYSPNOEA [None]
  - MYALGIA [None]
  - NERVOUSNESS [None]
  - NICOTINE DEPENDENCE [None]
  - STRESS [None]
  - WEIGHT INCREASED [None]
